FAERS Safety Report 9138237 (Version 1)
Quarter: 2013Q1

REPORT INFORMATION
  Report Type: Spontaneous
  Country: BR (occurrence: BR)
  Receive Date: 20130305
  Receipt Date: 20130305
  Transmission Date: 20140127
  Serious: Yes (Other)
  Sender: FDA-Public Use
  Company Number: BR-AMGEN-BRASP2013014728

PATIENT
  Age: 84 Year
  Sex: Female
  Weight: 58 kg

DRUGS (5)
  1. ENBREL [Suspect]
     Indication: RHEUMATOID ARTHRITIS
     Dosage: 50 MG, 1X/WEEK
     Route: 058
     Dates: start: 201207, end: 20121216
  2. CALCIUM [Concomitant]
     Indication: OSTEOPENIA
     Dosage: UNK
     Dates: start: 2009
  3. ALENDRONATE SODIUM [Concomitant]
     Indication: OSTEOPENIA
     Dosage: UNK
     Dates: start: 201210
  4. PREDNISONE [Concomitant]
     Indication: RHEUMATOID ARTHRITIS
     Dosage: UNK
     Dates: start: 2008
  5. METHOTREXATE [Concomitant]
     Indication: RHEUMATOID ARTHRITIS
     Dosage: UNK

REACTIONS (1)
  - Arthropathy [Unknown]
